FAERS Safety Report 16210525 (Version 2)
Quarter: 2019Q4

REPORT INFORMATION
  Report Type: Spontaneous
  Country: US (occurrence: US)
  Receive Date: 20190418
  Receipt Date: 20191219
  Transmission Date: 20200122
  Serious: Yes (Death)
  Sender: FDA-Public Use
  Company Number: US-SUN PHARMACEUTICAL INDUSTRIES LTD-2019R1-205533

PATIENT
  Age: 71 Year
  Sex: Male

DRUGS (2)
  1. SUNITINIB [Suspect]
     Active Substance: SUNITINIB
     Indication: RENAL CELL CARCINOMA STAGE IV
     Dosage: UNK
     Route: 065
  2. GEMCITABINE. [Suspect]
     Active Substance: GEMCITABINE
     Indication: RENAL CELL CARCINOMA STAGE IV
     Dosage: UNK
     Route: 065

REACTIONS (2)
  - Thrombotic microangiopathy [Fatal]
  - Acute kidney injury [Fatal]
